FAERS Safety Report 9197158 (Version 1)
Quarter: 2013Q1

REPORT INFORMATION
  Report Type: Spontaneous
  Country: US (occurrence: US)
  Receive Date: 20130328
  Receipt Date: 20130328
  Transmission Date: 20140127
  Serious: Yes (Other)
  Sender: FDA-Public Use
  Company Number: US-ROCHE-1206135

PATIENT
  Sex: Female

DRUGS (6)
  1. XOLAIR [Suspect]
     Indication: PRODUCT USED FOR UNKNOWN INDICATION
     Route: 065
  2. IRBESARTAN [Concomitant]
  3. SYMBICORT [Concomitant]
  4. XOPENEX [Concomitant]
  5. PIOGLITAZONE [Concomitant]
  6. PRAVASTATIN SODIUM [Concomitant]

REACTIONS (6)
  - Neuralgia [Unknown]
  - Asthenia [Unknown]
  - Parotid gland enlargement [Unknown]
  - Salivary gland enlargement [Unknown]
  - Dysphagia [Unknown]
  - Pruritus [Unknown]
